FAERS Safety Report 8959752 (Version 1)
Quarter: 2012Q4

REPORT INFORMATION
  Report Type: 
  Country: US (occurrence: US)
  Receive Date: 20121212
  Receipt Date: 20121212
  Transmission Date: 20130627
  Serious: Yes (Other)
  Sender: FDA-Public Use
  Company Number: PHEH2012US024198

PATIENT
  Age: 60 Year
  Sex: Male

DRUGS (1)
  1. EXJADE [Suspect]
     Indication: IRON OVERLOAD
     Dosage: 1250 mg, daily
     Route: 048
     Dates: start: 20120630, end: 20121005

REACTIONS (1)
  - Leukaemia [Unknown]
